FAERS Safety Report 4663238-4 (Version None)
Quarter: 2005Q2

REPORT INFORMATION
  Report Type: 
  Country: None (occurrence: None)
  Receive Date: 20050511
  Receipt Date: 20050208
  Transmission Date: 20051028
  Serious: No
  Sender: FDA-Public Use
  Company Number: 388626

PATIENT
  Age: 60 Year
  Sex: Male
  Weight: 97.5 kg

DRUGS (2)
  1. PEGASYS [Suspect]
     Indication: HEPATITIS C VIRUS
     Dosage: 180 MCG 1 PER WEEK SUBCUTANEOUS
     Route: 058
     Dates: start: 20040528, end: 20041105
  2. RIBAVIRIN [Concomitant]

REACTIONS (2)
  - PAPILLOEDEMA [None]
  - VISION BLURRED [None]
